FAERS Safety Report 25965670 (Version 1)
Quarter: 2025Q4

REPORT INFORMATION
  Report Type: Spontaneous
  Country: US (occurrence: US)
  Receive Date: 20251027
  Receipt Date: 20251027
  Transmission Date: 20260118
  Serious: Yes (Other)
  Sender: BIOMARIN
  Company Number: US-BIOMARINAP-US-2025-169593

PATIENT
  Age: 33 Year
  Sex: Female

DRUGS (2)
  1. PALYNZIQ [Suspect]
     Active Substance: PEGVALIASE-PQPZ
     Indication: Product used for unknown indication
     Dosage: 40 MILLIGRAM
  2. PALYNZIQ [Suspect]
     Active Substance: PEGVALIASE-PQPZ
     Dosage: UNK

REACTIONS (7)
  - Anaphylactic reaction [Unknown]
  - Abdominal pain [Unknown]
  - Swelling face [Unknown]
  - Anxiety [Unknown]
  - Panic reaction [Unknown]
  - Dyspnoea [Unknown]
  - Vomiting [Unknown]
